FAERS Safety Report 7489959-6 (Version None)
Quarter: 2011Q2

REPORT INFORMATION
  Report Type: 
  Country: None (occurrence: None)
  Receive Date: 20110519
  Receipt Date: 20110510
  Transmission Date: 20111010
  Serious: Yes (Hospitalization, Other)
  Sender: FDA-Public Use
  Company Number: US-BAYER-201037061NA

PATIENT
  Age: 29 Year
  Sex: Female
  Weight: 70.748 kg

DRUGS (2)
  1. YASMIN [Suspect]
     Indication: PRODUCT USED FOR UNKNOWN INDICATION
     Route: 048
  2. LEVAQUIN [Concomitant]
     Indication: NEPHROLITHIASIS
     Dosage: 500 MG, QD
     Route: 048
     Dates: start: 20050121

REACTIONS (3)
  - PAIN [None]
  - PULMONARY EMBOLISM [None]
  - EMOTIONAL DISTRESS [None]
